FAERS Safety Report 9466121 (Version 4)
Quarter: 2013Q3

REPORT INFORMATION
  Report Type: Spontaneous
  Country: US (occurrence: US)
  Receive Date: 20130820
  Receipt Date: 20130830
  Transmission Date: 20140515
  Serious: Yes (Death)
  Sender: FDA-Public Use
  Company Number: US-JNJFOC-20130809709

PATIENT
  Sex: Male
  Weight: 127.46 kg

DRUGS (18)
  1. XARELTO [Suspect]
     Indication: CEREBROVASCULAR ACCIDENT PROPHYLAXIS
     Route: 048
     Dates: start: 20130531, end: 201308
  2. XARELTO [Suspect]
     Indication: ATRIAL FIBRILLATION
     Route: 048
     Dates: start: 20130531, end: 201308
  3. ACTOS [Concomitant]
     Route: 065
  4. AVODART [Concomitant]
     Route: 065
  5. BENICAR [Concomitant]
     Route: 065
  6. CRESTOR [Concomitant]
     Route: 065
  7. JANUVIA [Concomitant]
     Route: 065
  8. LOVAZA [Concomitant]
     Route: 065
  9. WELCHOL [Concomitant]
     Route: 065
  10. ARMOUR THYROID [Concomitant]
     Indication: HYPOTHYROIDISM
     Route: 065
     Dates: start: 20130418
  11. SYNTHROID [Concomitant]
     Indication: HYPOTHYROIDISM
     Route: 065
  12. POTASSIUM CHLORIDE [Concomitant]
     Route: 065
  13. TRILIPIX [Concomitant]
     Route: 065
  14. UROXATRAL [Concomitant]
     Route: 065
  15. FUROSEMIDE [Concomitant]
     Route: 065
  16. CENTRUM SILVER [Concomitant]
     Route: 065
  17. VITAMIN D3 [Concomitant]
     Route: 065
  18. TASIGNA [Concomitant]
     Indication: CHRONIC MYELOID LEUKAEMIA
     Route: 065

REACTIONS (5)
  - Atrial fibrillation [Fatal]
  - Gastrointestinal haemorrhage [Fatal]
  - Convulsion [Fatal]
  - Mouth haemorrhage [Unknown]
  - Tongue biting [Unknown]
